FAERS Safety Report 10704883 (Version 1)
Quarter: 2015Q1

REPORT INFORMATION
  Report Type: Spontaneous
  Country: AT (occurrence: AT)
  Receive Date: 20150112
  Receipt Date: 20150112
  Transmission Date: 20150721
  Serious: Yes (Other)
  Sender: FDA-Public Use
  Company Number: AT-BAYER-2015-003149

PATIENT
  Sex: Female

DRUGS (1)
  1. STIVARGA [Suspect]
     Active Substance: REGORAFENIB

REACTIONS (10)
  - Myalgia [None]
  - Stomatitis [None]
  - Oropharyngeal pain [None]
  - Dysphonia [None]
  - Abdominal pain upper [None]
  - Dermatitis acneiform [None]
  - Metastases to lung [None]
  - Influenza like illness [None]
  - Fatigue [None]
  - Pain in extremity [None]
